FAERS Safety Report 13126778 (Version 1)
Quarter: 2017Q1

REPORT INFORMATION
  Report Type: Spontaneous
  Country: US (occurrence: US)
  Receive Date: 20170118
  Receipt Date: 20170118
  Transmission Date: 20170428
  Serious: No
  Sender: FDA-Public Use
  Company Number: US-ROCHE-1757160

PATIENT

DRUGS (26)
  1. ALPRAZOLAM. [Concomitant]
     Active Substance: ALPRAZOLAM
     Indication: ANXIETY
     Route: 048
  2. LEVOFLOXACIN. [Concomitant]
     Active Substance: LEVOFLOXACIN
     Route: 048
  3. OXYCODONE [Concomitant]
     Active Substance: OXYCODONE
     Indication: PAIN
     Dosage: AS NEEDED
     Route: 048
  4. PREDNISONE. [Concomitant]
     Active Substance: PREDNISONE
     Indication: GRAFT VERSUS HOST DISEASE
     Dosage: 6 TABS WEEKLY ON MONDAY OR TAKE 1.5 TABS DAILY
     Route: 048
  5. HYDROCHLOROTHIAZIDE. [Concomitant]
     Active Substance: HYDROCHLOROTHIAZIDE
     Route: 048
  6. MAGNESIUM OXIDE. [Concomitant]
     Active Substance: MAGNESIUM OXIDE
     Route: 048
  7. OMEPRAZOLE. [Concomitant]
     Active Substance: OMEPRAZOLE
     Dosage: DELAYED RELEASE
     Route: 048
  8. VFEND [Concomitant]
     Active Substance: VORICONAZOLE
     Indication: CHRONIC GRAFT VERSUS HOST DISEASE
     Dosage: 60 DAY SUPPLY, REFILL 3 TIMES
     Route: 048
  9. POTASSIUM CHLORIDE. [Concomitant]
     Active Substance: POTASSIUM CHLORIDE
     Dosage: ER PARTICLES/CRYSTALS
     Route: 048
  10. RITUXIMAB [Suspect]
     Active Substance: RITUXIMAB
     Indication: PRODUCT USED FOR UNKNOWN INDICATION
     Route: 065
  11. BUPROPION. [Concomitant]
     Active Substance: BUPROPION
     Dosage: EXTENDED RELEASE 24 HR, FOR MOOD
     Route: 048
  12. METRONIDAZOLE. [Concomitant]
     Active Substance: METRONIDAZOLE
     Route: 048
  13. SIROLIMUS. [Concomitant]
     Active Substance: SIROLIMUS
     Dosage: 1 TABLET DAILY
     Route: 048
  14. CLOBETASOL [Concomitant]
     Active Substance: CLOBETASOL
     Dosage: APPLIED 1 APPLICATION TOPICALLY TO SKIN
     Route: 061
  15. DULOXETINE. [Concomitant]
     Active Substance: DULOXETINE
     Dosage: DELAYED RELEASE, FOR MOOD
     Route: 048
  16. VORICONAZOLE. [Concomitant]
     Active Substance: VORICONAZOLE
     Route: 048
  17. ADEFOVIR [Concomitant]
     Active Substance: ADEFOVIR
     Indication: CHRONIC HEPATITIS B
     Route: 048
  18. IBRUTINIB [Concomitant]
     Active Substance: IBRUTINIB
     Dosage: MAINTENANCE THERAPY
     Route: 048
  19. METFORMIN [Concomitant]
     Active Substance: METFORMIN HYDROCHLORIDE
     Indication: DIABETES MELLITUS
     Dosage: FOR BLOOD PRESSURE
     Route: 048
  20. OMEGA 3 ACID ETHYL ESTERS [Concomitant]
     Active Substance: OMEGA-3-ACID ETHYL ESTERS
     Dosage: FOR CHOLESTEROL
     Route: 048
  21. SODIUM FLUORIDE. [Concomitant]
     Active Substance: SODIUM FLUORIDE
     Dosage: BSRUSH TEETH WITH DENTAL CREAM TWICE A DAY AND EXPECTORATE (SPIT OUT). DO NOT RINSE MOUTH FOR 30 MIN
     Route: 065
  22. VALACYCLOVIR [Concomitant]
     Active Substance: VALACYCLOVIR HYDROCHLORIDE
     Indication: INFECTION PROPHYLAXIS
     Route: 048
  23. PENTAMIDINE [Concomitant]
     Active Substance: PENTAMIDINE
     Indication: ANTIFUNGAL PROPHYLAXIS
     Dosage: IN DEXTROSE 5 PERCENT 250 ML IVPB
     Route: 042
  24. NIFEDIPINE. [Concomitant]
     Active Substance: NIFEDIPINE
     Dosage: EXTENDED RELEASE TABLET 24 HR
     Route: 048
  25. VALSARTAN. [Concomitant]
     Active Substance: VALSARTAN
     Indication: HYPERTENSION
     Dosage: HOLD FOR SYSTOLIC BLOOD PRESSURE (TOP NUMBER) LESS THAN 110
     Route: 048
  26. ZOLPIDEM [Concomitant]
     Active Substance: ZOLPIDEM\ZOLPIDEM TARTRATE
     Indication: INSOMNIA
     Dosage: EXTENDED RELEASE MULTIPHASE
     Route: 048

REACTIONS (2)
  - Rash [Unknown]
  - Urticaria [Unknown]
